FAERS Safety Report 5526070-5 (Version None)
Quarter: 2007Q4

REPORT INFORMATION
  Report Type: 
  Country: None (occurrence: None)
  Receive Date: 20071120
  Receipt Date: 20071105
  Transmission Date: 20080405
  Serious: Yes (Other)
  Sender: FDA-Public Use
  Company Number: 2007BM000170

PATIENT
  Age: 68 Year
  Sex: Female

DRUGS (2)
  1. PREDNISONE [Suspect]
     Indication: POLYMYALGIA RHEUMATICA
  2. ORAPRED [Suspect]

REACTIONS (2)
  - BACTERIA BLOOD IDENTIFIED [None]
  - PNEUMONIA [None]
